FAERS Safety Report 16945553 (Version 3)
Quarter: 2025Q1

REPORT INFORMATION
  Report Type: Spontaneous
  Country: FR (occurrence: FR)
  Receive Date: 20191022
  Receipt Date: 20250117
  Transmission Date: 20250409
  Serious: Yes (Life-Threatening)
  Sender: PFIZER
  Company Number: FR-PFIZER INC-2019451677

PATIENT

DRUGS (1)
  1. DINOPROSTONE [Suspect]
     Active Substance: DINOPROSTONE
     Indication: Delivery
     Route: 064
     Dates: start: 20190923

REACTIONS (2)
  - Foetal exposure during delivery [Unknown]
  - Bradycardia foetal [Unknown]

NARRATIVE: CASE EVENT DATE: 20190923
